FAERS Safety Report 4420426-X (Version None)
Quarter: 2004Q3

REPORT INFORMATION
  Report Type: 
  Country: None (occurrence: None)
  Receive Date: 20040809
  Receipt Date: 20040225
  Transmission Date: 20050211
  Serious: No
  Sender: FDA-Public Use
  Company Number: US-GLAXOSMITHKLINE-A0499856A

PATIENT
  Sex: Female

DRUGS (6)
  1. PAXIL CR [Suspect]
     Indication: DEPRESSION
     Dosage: 25MG PER DAY
     Route: 048
     Dates: start: 20031201
  2. PREMARIN [Concomitant]
  3. THYROID TAB [Concomitant]
  4. ALPRAZOLAM [Concomitant]
  5. ADVAIR [Concomitant]
  6. TRAZODONE HCL [Concomitant]

REACTIONS (1)
  - DYSPNOEA [None]
